FAERS Safety Report 8274132-4 (Version None)
Quarter: 2012Q2

REPORT INFORMATION
  Report Type: 
  Country: None (occurrence: None)
  Receive Date: 20120411
  Receipt Date: 20120409
  Transmission Date: 20120825
  Serious: Yes (Hospitalization)
  Sender: FDA-Public Use
  Company Number: US-PFIZER INC-2012088597

PATIENT
  Sex: Female
  Weight: 65.76 kg

DRUGS (17)
  1. NORVASC [Suspect]
     Indication: HYPERTENSION
  2. ACETYLSALICYLIC ACID [Concomitant]
     Dosage: UNK, DAILY
  3. KLONOPIN [Concomitant]
     Dosage: 1 MG, AS NEEDED
  4. LEXAPRO [Concomitant]
     Dosage: 10 MG, DAILY
  5. MECLIZINE HYDROCHLORIDE [Concomitant]
     Indication: DIZZINESS
     Dosage: UNK
  6. COREG [Concomitant]
     Dosage: 25 MG, 2X/DAY
     Dates: start: 20030101
  7. PROTONIX [Concomitant]
     Dosage: 40 MG, 2X/DAY
  8. TRICOR [Concomitant]
     Dosage: 145 MG, DAILY
  9. SYNTHROID [Concomitant]
     Dosage: 100 UG, DAILY
  10. LIVALO [Concomitant]
     Dosage: 2 MG, DAILY
  11. XANAX [Concomitant]
     Dosage: 1 MG, 3X/DAY
  12. PACERONE [Concomitant]
     Dosage: 400 MG, DAILY
     Route: 048
  13. NORVASC [Suspect]
     Indication: CARDIAC DISORDER
     Dosage: 10 MG, DAILY
  14. RANEXA [Concomitant]
     Dosage: 500 MG, 2X/DAY
  15. LOVAZA [Concomitant]
     Dosage: 4000 MG, DAILY
     Route: 048
  16. EFFIENT [Concomitant]
     Dosage: 10 MG, DAILY
  17. NITROGLYCERIN [Concomitant]
     Dosage: UNK

REACTIONS (4)
  - ABNORMAL BEHAVIOUR [None]
  - AMNESIA [None]
  - APPARENT DEATH [None]
  - NASOPHARYNGITIS [None]
